FAERS Safety Report 9259379 (Version 1)
Quarter: 2013Q2

REPORT INFORMATION
  Report Type: Spontaneous
  Country: TR (occurrence: TR)
  Receive Date: 20130428
  Receipt Date: 20130428
  Transmission Date: 20140414
  Serious: Yes (Other)
  Sender: FDA-Public Use
  Company Number: TR-ROCHE-1219004

PATIENT
  Age: 78 Year
  Sex: Male
  Weight: 58 kg

DRUGS (1)
  1. RITUXIMAB [Suspect]
     Indication: PRODUCT USED FOR UNKNOWN INDICATION
     Route: 042

REACTIONS (3)
  - Dyspnoea [Recovered/Resolved]
  - Hypotension [Recovered/Resolved]
  - Feeling cold [Recovered/Resolved]
